FAERS Safety Report 4808158-7 (Version None)
Quarter: 2005Q4

REPORT INFORMATION
  Report Type: 
  Country: None (occurrence: None)
  Receive Date: 20051020
  Receipt Date: 20051014
  Transmission Date: 20060501
  Serious: Yes (Hospitalization)
  Sender: FDA-Public Use
  Company Number: 2005-10-0544

PATIENT
  Age: 23 Year
  Sex: Female

DRUGS (2)
  1. INTRON A [Suspect]
     Indication: HEPATITIS B
     Dosage: 5 MIU TIW INTRAMUSCULAR
     Route: 030
     Dates: start: 20050427, end: 20051003
  2. LAMIVUDINE (3TC) INJECTABLE [Concomitant]

REACTIONS (2)
  - DEPRESSION [None]
  - LIVER ABSCESS [None]
